FAERS Safety Report 18742392 (Version 1)
Quarter: 2021Q1

REPORT INFORMATION
  Report Type: Spontaneous
  Country: JP (occurrence: JP)
  Receive Date: 20210114
  Receipt Date: 20210114
  Transmission Date: 20210419
  Serious: Yes (Hospitalization)
  Sender: FDA-Public Use
  Company Number: JP-ALLERGAN-2101612US

PATIENT
  Age: 36 Year
  Sex: Female

DRUGS (1)
  1. ASENAPINE MALEATE ? BP [Suspect]
     Active Substance: ASENAPINE MALEATE
     Indication: DEPRESSION
     Dosage: UNK
     Route: 060
     Dates: start: 20201211, end: 20201212

REACTIONS (2)
  - Stevens-Johnson syndrome [Unknown]
  - Off label use [Unknown]

NARRATIVE: CASE EVENT DATE: 20201211
